FAERS Safety Report 5887198-3 (Version None)
Quarter: 2008Q3

REPORT INFORMATION
  Report Type: 
  Country: None (occurrence: None)
  Receive Date: 20080915
  Receipt Date: 20080829
  Transmission Date: 20090109
  Serious: Yes (Death)
  Sender: FDA-Public Use
  Company Number: JPI-P-003498

PATIENT
  Age: 63 Year
  Sex: Female

DRUGS (5)
  1. XYREM [Suspect]
     Indication: CATAPLEXY
     Dosage: 9 GM (4.5 GM, 2 IN 1 D) ,ORAL
     Route: 048
     Dates: start: 20040101
  2. XYREM [Suspect]
     Indication: NARCOLEPSY
     Dosage: 9 GM (4.5 GM, 2 IN 1 D) ,ORAL
     Route: 048
     Dates: start: 20040101
  3. CLONAZEPAM [Concomitant]
  4. PAROXETINE HCL [Concomitant]
  5. METHYLPHENIDATE HCL [Concomitant]

REACTIONS (5)
  - BLOOD PRESSURE DECREASED [None]
  - BLOOD PRESSURE INCREASED [None]
  - CEREBRAL HAEMORRHAGE [None]
  - INJURY [None]
  - ROAD TRAFFIC ACCIDENT [None]
